FAERS Safety Report 8133299-9 (Version None)
Quarter: 2012Q1

REPORT INFORMATION
  Report Type: 
  Country: None (occurrence: None)
  Receive Date: 20120213
  Receipt Date: 20120208
  Transmission Date: 20120608
  Serious: No
  Sender: FDA-Public Use
  Company Number: GB-ROCHE-756769

PATIENT
  Sex: Female
  Weight: 47.6 kg

DRUGS (2)
  1. TRASTUZUMAB EMTANSINE [Suspect]
     Indication: BREAST CANCER METASTATIC
     Dosage: DOSE HELD
     Route: 042
  2. BLINDED PERTUZUMAB [Suspect]
     Indication: BREAST CANCER METASTATIC
     Dosage: DOSE HELD
     Route: 042

REACTIONS (1)
  - EJECTION FRACTION DECREASED [None]
